FAERS Safety Report 5601143-7 (Version None)
Quarter: 2008Q1

REPORT INFORMATION
  Report Type: 
  Country: None (occurrence: None)
  Receive Date: 20080122
  Receipt Date: 20080122
  Transmission Date: 20080703
  Serious: Yes (Death)
  Sender: FDA-Public Use
  Company Number: None

PATIENT
  Age: 90 Year
  Sex: Female
  Weight: 65.7716 kg

DRUGS (2)
  1. PAXIL [Suspect]
     Indication: DEPRESSION
     Dosage: UNKNOWN ONE A DAY PO
     Route: 048
     Dates: start: 20020101, end: 20040501
  2. SEROQUEL [Suspect]
     Indication: DEPRESSION
     Dosage: ONE A DAY PO
     Route: 048
     Dates: start: 20030101, end: 20040501

REACTIONS (6)
  - AGGRESSION [None]
  - ANGER [None]
  - DEMENTIA [None]
  - SOMNOLENCE [None]
  - SUICIDAL IDEATION [None]
  - WITHDRAWAL SYNDROME [None]
